FAERS Safety Report 18648929 (Version 1)
Quarter: 2020Q4

REPORT INFORMATION
  Report Type: Spontaneous
  Country: CN (occurrence: CN)
  Receive Date: 20201222
  Receipt Date: 20201222
  Transmission Date: 20210114
  Serious: Yes (Hospitalization)
  Sender: FDA-Public Use
  Company Number: CN-PFIZER INC-2020503571

PATIENT
  Age: 15 Year
  Sex: Female
  Weight: 67 kg

DRUGS (1)
  1. CELEBREX [Suspect]
     Active Substance: CELECOXIB
     Indication: BONE CANCER
     Dosage: 200.000 MG, 1X/DAY
     Route: 048
     Dates: start: 20201110, end: 20201110

REACTIONS (2)
  - Erythema [Recovering/Resolving]
  - Drug eruption [Recovering/Resolving]

NARRATIVE: CASE EVENT DATE: 20201110
